FAERS Safety Report 8016338-5 (Version None)
Quarter: 2011Q4

REPORT INFORMATION
  Report Type: 
  Country: None (occurrence: None)
  Receive Date: 20111230
  Receipt Date: 20111219
  Transmission Date: 20120403
  Serious: No
  Sender: FDA-Public Use
  Company Number: US-MERCK-1110USA00895

PATIENT
  Age: 63 Year
  Sex: Female

DRUGS (1)
  1. ZOLINZA [Suspect]
     Indication: T-CELL LYMPHOMA
     Route: 048
     Dates: start: 20110307, end: 20110322

REACTIONS (1)
  - DRUG INEFFECTIVE [None]
